FAERS Safety Report 5692716-4 (Version None)
Quarter: 2008Q2

REPORT INFORMATION
  Report Type: 
  Country: None (occurrence: None)
  Receive Date: 20080401
  Receipt Date: 20080324
  Transmission Date: 20081010
  Serious: Yes (Life-Threatening, Hospitalization)
  Sender: FDA-Public Use
  Company Number: APP200800216

PATIENT
  Age: 48 Year
  Sex: Female

DRUGS (6)
  1. DIPRIVAN [Suspect]
     Indication: ANAESTHESIA
     Dosage: ONE
     Dates: start: 20080305, end: 20080305
  2. VECURONIUM (VECURONIUM) [Suspect]
     Indication: DRUG USE FOR UNKNOWN INDICATION
     Dates: start: 20080305, end: 20080305
  3. MIDAZOLAM HYDROCHLORIDE [Suspect]
     Indication: DRUG USE FOR UNKNOWN INDICATION
     Dates: start: 20080305, end: 20080305
  4. DEXAMETHASONE SODIUM PHOSPHATE [Suspect]
     Indication: DRUG USE FOR UNKNOWN INDICATION
     Dates: start: 20080305, end: 20080305
  5. CEFAZOLIN [Suspect]
     Indication: DRUG USE FOR UNKNOWN INDICATION
     Dates: start: 20080305, end: 20080305
  6. NEOSTIGMINE METHYLSULFATE INJECTION, USP (NEOSTIGMINE METHLYSULFATE) [Concomitant]

REACTIONS (1)
  - ANAPHYLACTIC REACTION [None]
